FAERS Safety Report 6452673-X (Version None)
Quarter: 2009Q4

REPORT INFORMATION
  Report Type: 
  Country: None (occurrence: None)
  Receive Date: 20091124
  Receipt Date: 20091119
  Transmission Date: 20100525
  Serious: Yes (Hospitalization)
  Sender: FDA-Public Use
  Company Number: US-ELI_LILLY_AND_COMPANY-US200911005276

PATIENT
  Age: 71 Year
  Sex: Male

DRUGS (11)
  1. BYETTA [Suspect]
     Indication: TYPE 2 DIABETES MELLITUS
     Dosage: 10 UG, 2/D
     Dates: end: 20091115
  2. AVANDAMET [Concomitant]
     Indication: TYPE 2 DIABETES MELLITUS
  3. VASOTEC [Concomitant]
  4. SYNTHROID [Concomitant]
  5. ZOCOR [Concomitant]
  6. NORVASC [Concomitant]
  7. TRICOR [Concomitant]
  8. HYDROCHLOROTHIAZIDE [Concomitant]
  9. ASPIRIN [Concomitant]
  10. PROCARDIA [Concomitant]
  11. FLOMAX [Concomitant]

REACTIONS (1)
  - PANCREATITIS [None]
